FAERS Safety Report 9699009 (Version 1)
Quarter: 2013Q4

REPORT INFORMATION
  Report Type: Spontaneous
  Country: US (occurrence: None)
  Receive Date: 20131118
  Receipt Date: 20131118
  Transmission Date: 20140711
  Serious: Yes (Other)
  Sender: FDA-Public Use
  Company Number: 2013P1020968

PATIENT
  Age: 47 Year
  Sex: Female

DRUGS (1)
  1. MYORISAN 40 MG [Suspect]
     Dates: start: 20131107

REACTIONS (1)
  - Hysterectomy [None]
